FAERS Safety Report 22788198 (Version 5)
Quarter: 2024Q4

REPORT INFORMATION
  Report Type: Report from Study
  Country: US (occurrence: US)
  Receive Date: 20230804
  Receipt Date: 20241107
  Transmission Date: 20250114
  Serious: Yes (Other)
  Sender: AMNEAL
  Company Number: US-AMNEAL PHARMACEUTICALS-2023-AMRX-02612

PATIENT
  Age: 73 Year
  Sex: Female
  Weight: 48.526 kg

DRUGS (1)
  1. CARBIDOPA\LEVODOPA [Suspect]
     Active Substance: CARBIDOPA\LEVODOPA
     Indication: Parkinson^s disease
     Dosage: 3 CAPSULES (48.75/195 MG), QID
     Route: 048
     Dates: start: 202304

REACTIONS (8)
  - Intestinal obstruction [Unknown]
  - Decreased appetite [Unknown]
  - Malaise [Unknown]
  - Panic attack [Unknown]
  - Blood pressure fluctuation [Unknown]
  - Blood glucose increased [Unknown]
  - Incoherent [Unknown]
  - Anxiety [Unknown]

NARRATIVE: CASE EVENT DATE: 20230721
